FAERS Safety Report 17660447 (Version 1)
Quarter: 2020Q2

REPORT INFORMATION
  Report Type: Spontaneous
  Country: US (occurrence: US)
  Receive Date: 20200413
  Receipt Date: 20200413
  Transmission Date: 20200713
  Serious: No
  Sender: FDA-Public Use
  Company Number: US-PFIZER INC-2019126255

PATIENT
  Age: 63 Year
  Sex: Female
  Weight: 79.38 kg

DRUGS (6)
  1. LYRICA [Suspect]
     Active Substance: PREGABALIN
     Indication: SEIZURE
     Dosage: 100 MG, 2X/DAY
     Route: 048
  2. CITALOPRAM [CITALOPRAM HYDROCHLORIDE] [Concomitant]
     Indication: DEPRESSION
     Dosage: 10 MG, 1X/DAY (1 TABLET BY MOUTH AT NIGHT)
     Route: 048
  3. KEPPRA [Concomitant]
     Active Substance: LEVETIRACETAM
     Indication: SEIZURE
     Dosage: 1000 MG, 3X/DAY (ON AND OFF ) (2 TABLETS BY MOUTH THREE TIMES DAILY )
     Route: 048
     Dates: start: 201207
  4. LYRICA [Suspect]
     Active Substance: PREGABALIN
     Indication: EPILEPSY
  5. LYRICA [Suspect]
     Active Substance: PREGABALIN
     Indication: PAIN
  6. LEVOTHYROXINE. [Concomitant]
     Active Substance: LEVOTHYROXINE
     Indication: THYROID DISORDER
     Dosage: 0.125 MG, 1X/DAY (1 TABLET BY MOUTH IN THE MORNING)
     Route: 048

REACTIONS (1)
  - Viral infection [Unknown]
